FAERS Safety Report 16319945 (Version 5)
Quarter: 2024Q3

REPORT INFORMATION
  Report Type: Spontaneous
  Country: CZ (occurrence: CZ)
  Receive Date: 20190516
  Receipt Date: 20240819
  Transmission Date: 20241017
  Serious: Yes (Other)
  Sender: PFIZER
  Company Number: CZ-TEVA-2019-CZ-1044806

PATIENT
  Age: 38 Year
  Sex: Female

DRUGS (5)
  1. METHYLPREDNISOLONE SODIUM SUCCINATE [Suspect]
     Active Substance: METHYLPREDNISOLONE SODIUM SUCCINATE
     Dosage: 2 MG/KG, 1X/DAY
     Route: 042
     Dates: start: 20170210, end: 20170217
  2. METHYLPREDNISOLONE SODIUM SUCCINATE [Suspect]
     Active Substance: METHYLPREDNISOLONE SODIUM SUCCINATE
     Dosage: 4 MG/KG, 1X/DAY
     Route: 042
     Dates: start: 2017, end: 20170407
  3. METHYLPREDNISOLONE SODIUM SUCCINATE [Suspect]
     Active Substance: METHYLPREDNISOLONE SODIUM SUCCINATE
     Dosage: 6 MG/KG, 1X/DAY
     Route: 042
     Dates: start: 20170218, end: 2017
  4. MYCOPHENOLATE MOFETIL [Suspect]
     Active Substance: MYCOPHENOLATE MOFETIL
     Indication: Immunosuppression
     Dosage: 1 G, BID
     Dates: start: 20170217, end: 20170404
  5. ACIDUM URSODEOXYCHOLICUM [Concomitant]
     Indication: Cholestasis
     Dosage: 1500 MG, 1X/DAY
     Dates: start: 2017

REACTIONS (6)
  - Neutropenia [Recovering/Resolving]
  - Thrombocytopenia [Recovering/Resolving]
  - Mental disorder [Recovering/Resolving]
  - Decreased appetite [Recovering/Resolving]
  - Blood thyroid stimulating hormone decreased [Recovering/Resolving]
  - Muscular weakness [Recovering/Resolving]

NARRATIVE: CASE EVENT DATE: 20170220
